FAERS Safety Report 9802669 (Version 2)
Quarter: 2014Q1

REPORT INFORMATION
  Report Type: Spontaneous
  Country: US (occurrence: US)
  Receive Date: 20140108
  Receipt Date: 20140129
  Transmission Date: 20141002
  Serious: No
  Sender: FDA-Public Use
  Company Number: US-BIOGENIDEC-2014BI000166

PATIENT
  Sex: Female

DRUGS (3)
  1. AVONEX [Suspect]
     Indication: MULTIPLE SCLEROSIS
     Route: 030
     Dates: start: 200709, end: 200710
  2. AVONEX [Suspect]
     Indication: MULTIPLE SCLEROSIS
     Route: 030
     Dates: start: 201206
  3. IBUPROFEN [Concomitant]
     Indication: PREMEDICATION

REACTIONS (10)
  - Multiple sclerosis [Unknown]
  - Influenza [Recovered/Resolved]
  - Multiple allergies [Unknown]
  - Abdominal pain upper [Recovered/Resolved]
  - Sinusitis [Recovered/Resolved]
  - Nasopharyngitis [Recovered/Resolved]
  - Gastrooesophageal reflux disease [Recovered/Resolved]
  - Influenza like illness [Recovered/Resolved]
  - Pain [Not Recovered/Not Resolved]
  - Chest pain [Recovered/Resolved]
